FAERS Safety Report 9107855 (Version 3)
Quarter: 2013Q3

REPORT INFORMATION
  Report Type: Spontaneous
  Country: US (occurrence: US)
  Receive Date: 20130221
  Receipt Date: 20130709
  Transmission Date: 20140515
  Serious: No
  Sender: FDA-Public Use
  Company Number: US-PFIZER INC-2013061537

PATIENT
  Age: 57 Year
  Sex: Female
  Weight: 72.6 kg

DRUGS (3)
  1. NORVASC [Suspect]
     Indication: HYPERTENSION
     Dosage: 10 MG, 1X/DAY
     Route: 048
     Dates: start: 2008, end: 20130220
  2. NORVASC [Suspect]
  3. ALENDRONATE SODIUM [Concomitant]
     Indication: OSTEOPOROSIS
     Dosage: 70 MG, WEEKLY

REACTIONS (3)
  - Product size issue [Unknown]
  - Urticaria [Not Recovered/Not Resolved]
  - Rash [Recovering/Resolving]
